FAERS Safety Report 5822739-3 (Version None)
Quarter: 2008Q3

REPORT INFORMATION
  Report Type: 
  Country: None (occurrence: None)
  Receive Date: 20080725
  Receipt Date: 20070924
  Transmission Date: 20090109
  Serious: No
  Sender: FDA-Public Use
  Company Number: US-AMGEN-KDL245003

PATIENT
  Sex: Male
  Weight: 133.9 kg

DRUGS (7)
  1. PROCRIT [Suspect]
     Indication: MYELODYSPLASTIC SYNDROME
     Route: 058
     Dates: start: 20070719
  2. NORVASC [Concomitant]
     Route: 048
  3. ALBUTEROL [Concomitant]
  4. PREVACID [Concomitant]
  5. ASCORBIC ACID [Concomitant]
  6. CENTRUM [Concomitant]
  7. BLOOD CELLS, PACKED HUMAN [Concomitant]
     Dates: start: 20070701

REACTIONS (2)
  - OEDEMA PERIPHERAL [None]
  - PLATELET COUNT DECREASED [None]
